FAERS Safety Report 20125350 (Version 4)
Quarter: 2023Q2

REPORT INFORMATION
  Report Type: Spontaneous
  Country: US (occurrence: US)
  Receive Date: 20211129
  Receipt Date: 20230408
  Transmission Date: 20230721
  Serious: Yes (Hospitalization)
  Sender: FDA-Public Use
  Company Number: US-NOVARTISPH-NVSC2021US264323

PATIENT
  Age: 16 Year
  Sex: Female

DRUGS (11)
  1. ADAKVEO [Suspect]
     Active Substance: CRIZANLIZUMAB-TMCA
     Indication: Sickle cell disease
     Dosage: 350 MG
     Route: 065
     Dates: start: 20200728, end: 20200728
  2. ADAKVEO [Suspect]
     Active Substance: CRIZANLIZUMAB-TMCA
     Dosage: 380 MG
     Route: 065
     Dates: start: 20200820, end: 20200820
  3. ADAKVEO [Suspect]
     Active Substance: CRIZANLIZUMAB-TMCA
     Dosage: 380 MG
     Route: 065
     Dates: start: 20201112, end: 20201112
  4. ADAKVEO [Suspect]
     Active Substance: CRIZANLIZUMAB-TMCA
     Dosage: 380 MG
     Route: 065
     Dates: start: 20201125, end: 20201125
  5. ADAKVEO [Suspect]
     Active Substance: CRIZANLIZUMAB-TMCA
     Dosage: 380 MG
     Route: 065
     Dates: start: 20201222, end: 20201222
  6. ADAKVEO [Suspect]
     Active Substance: CRIZANLIZUMAB-TMCA
     Dosage: 400 MG
     Route: 065
     Dates: start: 20210126, end: 20210126
  7. ADAKVEO [Suspect]
     Active Substance: CRIZANLIZUMAB-TMCA
     Dosage: 420 MG
     Route: 065
     Dates: start: 20210225, end: 20210225
  8. ADAKVEO [Suspect]
     Active Substance: CRIZANLIZUMAB-TMCA
     Dosage: 430 MG
     Route: 065
     Dates: start: 20210505, end: 20210505
  9. ADAKVEO [Suspect]
     Active Substance: CRIZANLIZUMAB-TMCA
     Dosage: 430 MG
     Route: 065
     Dates: start: 20210513, end: 20210513
  10. ADAKVEO [Suspect]
     Active Substance: CRIZANLIZUMAB-TMCA
     Dosage: 400 MG
     Route: 065
     Dates: start: 20210810, end: 20210810
  11. ADAKVEO [Suspect]
     Active Substance: CRIZANLIZUMAB-TMCA
     Dosage: 400 MG
     Route: 065
     Dates: start: 20210907

REACTIONS (5)
  - Pain [Unknown]
  - Fungaemia [Unknown]
  - Candida infection [Unknown]
  - Pyrexia [Unknown]
  - Product dose omission issue [Unknown]

NARRATIVE: CASE EVENT DATE: 20211108
